FAERS Safety Report 16188288 (Version 1)
Quarter: 2019Q2

REPORT INFORMATION
  Report Type: Spontaneous
  Country: JP (occurrence: JP)
  Receive Date: 20190412
  Receipt Date: 20190412
  Transmission Date: 20190711
  Serious: Yes (Other)
  Sender: FDA-Public Use
  Company Number: JP-SA-2019SA101271

PATIENT
  Sex: Male

DRUGS (2)
  1. HARNAL [Suspect]
     Active Substance: TAMSULOSIN HYDROCHLORIDE
     Indication: BENIGN PROSTATIC HYPERPLASIA
     Route: 048
  2. PELEX [CAFFEINE;CHLORPHENAMINE MALEATE;PARACETAMOL;SALICYLAMIDE] [Concomitant]

REACTIONS (1)
  - Prostate cancer [Unknown]
